FAERS Safety Report 9802407 (Version 2)
Quarter: 2014Q1

REPORT INFORMATION
  Report Type: Report from Study
  Country: US (occurrence: US)
  Receive Date: 20140107
  Receipt Date: 20140107
  Transmission Date: 20141002
  Serious: Yes (Hospitalization)
  Sender: FDA-Public Use
  Company Number: US-BRISTOL-MYERS SQUIBB COMPANY-16212466

PATIENT
  Age: 41 Year
  Sex: Male

DRUGS (1)
  1. IPILIMUMAB [Suspect]
     Indication: MALIGNANT MELANOMA
     Dosage: 986 MILLIGRAM
     Route: 042
     Dates: start: 20110817

REACTIONS (1)
  - Abdominal pain lower [Recovered/Resolved with Sequelae]
